FAERS Safety Report 22609823 (Version 1)
Quarter: 2023Q2

REPORT INFORMATION
  Report Type: Spontaneous
  Country: NL (occurrence: NL)
  Receive Date: 20230616
  Receipt Date: 20230616
  Transmission Date: 20230721
  Serious: Yes (Other)
  Sender: FDA-Public Use
  Company Number: None

PATIENT
  Sex: Male
  Weight: 90 kg

DRUGS (2)
  1. PRAVASTATIN [Suspect]
     Active Substance: PRAVASTATIN
     Indication: Hypercholesterolaemia
     Dosage: 40 MILLIGRAM DAILY;  PRAVASTATINE TABLET 40MG / BRAND NAME NOT SPECIFIED
     Route: 065
     Dates: start: 20221201
  2. KEPPRA [Concomitant]
     Active Substance: LEVETIRACETAM
     Indication: Epilepsy
     Dosage: 2000 MILLIGRAM DAILY;  LEVETIRACETAM TABLET FO 1000MG / KEPPRA TABLET FILM COATING 1000MG
     Route: 065
     Dates: start: 20180101

REACTIONS (1)
  - Epilepsy [Recovered/Resolved]
